FAERS Safety Report 5373323-X (Version None)
Quarter: 2007Q2

REPORT INFORMATION
  Report Type: 
  Country: None (occurrence: None)
  Receive Date: 20070628
  Receipt Date: 20070614
  Transmission Date: 20071010
  Serious: Yes (Hospitalization)
  Sender: FDA-Public Use
  Company Number: US-ELI_LILLY_AND_COMPANY-US200706003321

PATIENT
  Age: 63 Year
  Sex: Female

DRUGS (2)
  1. FORTEO [Suspect]
     Indication: OSTEOPOROSIS
     Dosage: UNK, UNK
     Dates: start: 20070301, end: 20070417
  2. ANALGESICS [Concomitant]
     Indication: RHEUMATOID ARTHRITIS

REACTIONS (6)
  - FALL [None]
  - FLUID RETENTION [None]
  - HAEMATOMA [None]
  - HEAD INJURY [None]
  - NECK INJURY [None]
  - PULMONARY HYPERTENSION [None]
